FAERS Safety Report 7072482-0 (Version None)
Quarter: 2010Q4

REPORT INFORMATION
  Report Type: 
  Country: None (occurrence: None)
  Receive Date: 20101029
  Receipt Date: 20101020
  Transmission Date: 20110411
  Serious: Yes (Hospitalization)
  Sender: FDA-Public Use
  Company Number: CA-JNJFOC-20100407199

PATIENT
  Sex: Female
  Weight: 100 kg

DRUGS (2)
  1. REMICADE [Suspect]
     Indication: CROHN'S DISEASE
     Dosage: (DATES AND FREQUENCY UNSPECIFIED)
     Route: 042
  2. REMICADE [Suspect]
     Dosage: (DATES AND FREQUENCY UNSPECIFIED)
     Route: 042

REACTIONS (1)
  - BACK DISORDER [None]
